FAERS Safety Report 20774352 (Version 2)
Quarter: 2022Q2

REPORT INFORMATION
  Report Type: Report from Study
  Country: BR (occurrence: BR)
  Receive Date: 20220502
  Receipt Date: 20220510
  Transmission Date: 20220721
  Serious: Yes (Other)
  Sender: FDA-Public Use
  Company Number: BR-ABBVIE-22K-020-4375759-00

PATIENT
  Sex: Female

DRUGS (1)
  1. RINVOQ [Suspect]
     Active Substance: UPADACITINIB
     Indication: Rheumatoid arthritis
     Route: 048
     Dates: start: 20220208

REACTIONS (5)
  - Carpal tunnel syndrome [Unknown]
  - Pain in extremity [Unknown]
  - Burning sensation [Unknown]
  - Insomnia [Unknown]
  - Blood glucose abnormal [Unknown]

NARRATIVE: CASE EVENT DATE: 20220101
